FAERS Safety Report 8592677-4 (Version None)
Quarter: 2012Q3

REPORT INFORMATION
  Report Type: 
  Country: None (occurrence: None)
  Receive Date: 20120814
  Receipt Date: 20120515
  Transmission Date: 20120928
  Serious: No
  Sender: FDA-Public Use
  Company Number: US-COVIDIEN/TYCO HEALTHCARE/MALLINCKRODT-T201201767

PATIENT
  Sex: Male

DRUGS (1)
  1. FENTANYL [Suspect]
     Indication: HEADACHE
     Dosage: 25 UG/HR, UNK
     Route: 062
     Dates: start: 20120501

REACTIONS (2)
  - BALANCE DISORDER [None]
  - FALL [None]
